FAERS Safety Report 7293011-2 (Version None)
Quarter: 2011Q1

REPORT INFORMATION
  Report Type: 
  Country: None (occurrence: None)
  Receive Date: 20110215
  Receipt Date: 20110205
  Transmission Date: 20110831
  Serious: Yes (Death)
  Sender: FDA-Public Use
  Company Number: IT-ROCHE-742007

PATIENT
  Sex: Female
  Weight: 60 kg

DRUGS (7)
  1. OMEPRAZOLE [Concomitant]
     Indication: PROPHYLAXIS
     Route: 048
     Dates: start: 20050101, end: 20100901
  2. SPIRAPRIL [Concomitant]
     Indication: HYPERTENSION
     Route: 048
     Dates: start: 20050101
  3. METHOTREXATE [Suspect]
     Indication: RHEUMATOID ARTHRITIS
     Route: 030
     Dates: start: 20050401, end: 20100901
  4. FOLINA [Concomitant]
     Route: 048
     Dates: start: 20050401
  5. ACTONEL [Concomitant]
     Indication: OSTEOPOROSIS
     Route: 048
  6. TOCILIZUMAB [Suspect]
     Indication: RHEUMATOID ARTHRITIS
     Dosage: DOSAGE FORM: INFUSION. 20 JUL 2010 REPORTED AS WEEK 260.
     Route: 042
     Dates: start: 20050726, end: 20100720
  7. TOCILIZUMAB [Suspect]
     Dosage: 23 JUNE 2010; LAST INFUSION PRIOR TO SAE
     Route: 042
     Dates: start: 20050726, end: 20051215

REACTIONS (1)
  - NEUROENDOCRINE CARCINOMA [None]
